FAERS Safety Report 24013510 (Version 1)
Quarter: 2024Q2

REPORT INFORMATION
  Report Type: Spontaneous
  Country: US (occurrence: US)
  Receive Date: 20240626
  Receipt Date: 20240626
  Transmission Date: 20240716
  Serious: Yes (Life-Threatening, Hospitalization, Other)
  Sender: FDA-Public Use
  Company Number: US-MLMSERVICE-20240509-PI056368-00217-1

PATIENT
  Age: 49 Year
  Sex: Female

DRUGS (2)
  1. METFORMIN [Suspect]
     Active Substance: METFORMIN HYDROCHLORIDE
     Indication: Type 2 diabetes mellitus
     Dosage: 1000 MILLIGRAM, INCREASED
     Route: 065
  2. METFORMIN [Suspect]
     Active Substance: METFORMIN HYDROCHLORIDE
     Dosage: 500 MILLIGRAM
     Route: 065

REACTIONS (10)
  - Acute kidney injury [Recovered/Resolved]
  - Lactic acidosis [Recovered/Resolved]
  - Septic shock [Recovered/Resolved]
  - Pancreatitis [Recovered/Resolved]
  - Gastrointestinal oedema [Recovered/Resolved]
  - Pneumonia aspiration [Recovered/Resolved]
  - Toxicity to various agents [Recovered/Resolved]
  - Pulse absent [Recovered/Resolved]
  - Metabolic acidosis [Recovered/Resolved]
  - Blood potassium increased [Recovered/Resolved]
